FAERS Safety Report 15711563 (Version 6)
Quarter: 2021Q2

REPORT INFORMATION
  Report Type: Report from Study
  Country: None (occurrence: JP)
  Receive Date: 20181212
  Receipt Date: 20210510
  Transmission Date: 20210716
  Serious: Yes (Hospitalization)
  Sender: FDA-Public Use
  Company Number: JP-ABBVIE-17K-087-1956848-00

PATIENT
  Age: 63 Year
  Sex: Male
  Weight: 58 kg

DRUGS (39)
  1. DUODOPA [Suspect]
     Active Substance: CARBIDOPA\LEVODOPA
     Dosage: MD: 12.5 ML, CD: 2.2 ML/HR X 16 HR, ED: 2.5 ML/UNIT X 2
     Route: 050
     Dates: start: 20170809, end: 20170822
  2. DUODOPA [Suspect]
     Active Substance: CARBIDOPA\LEVODOPA
     Dosage: MD: 12.5 ML, CD: 2.1 ML/HR X 16 HR, ED: 2.5 ML/UNIT X 2
     Route: 050
     Dates: start: 20180801, end: 20180828
  3. PRAMIPEXOLE HYDROCHLORIDE [Concomitant]
     Active Substance: PRAMIPEXOLE DIHYDROCHLORIDE
     Route: 048
     Dates: start: 20161130
  4. PANTETHINE [Concomitant]
     Active Substance: PANTETHINE
     Indication: PRODUCT USED FOR UNKNOWN INDICATION
     Route: 048
  5. LOXOPROFEN SODIUM HYDRATE [Concomitant]
     Active Substance: LOXOPROFEN SODIUM DIHYDRATE
     Indication: PRODUCT USED FOR UNKNOWN INDICATION
     Route: 048
     Dates: end: 20170308
  6. SODIUM CITRATE. [Concomitant]
     Active Substance: SODIUM CITRATE
     Indication: PRODUCT USED FOR UNKNOWN INDICATION
     Route: 048
  7. DUODOPA [Suspect]
     Active Substance: CARBIDOPA\LEVODOPA
     Dosage: MD: 12.5 ML, CD: 2.3 ML/HR X 16 HR, ED: 2.3 ML/UNIT X 2
     Route: 050
     Dates: start: 20161228, end: 20170112
  8. DUODOPA [Suspect]
     Active Substance: CARBIDOPA\LEVODOPA
     Dosage: MD: 12.5 ML, CD: 2.3 ML/HR X 16 HR, ED: 2.0 ML/UNIT X 2
     Route: 050
     Dates: start: 20170113, end: 20170321
  9. DUODOPA [Suspect]
     Active Substance: CARBIDOPA\LEVODOPA
     Dosage: MD: 12.5 ML, CD: 2.0 ML/HR X 16 HR, ED: 2.5 ML/UNIT X 2
     Route: 050
     Dates: start: 20180829, end: 20180926
  10. PRAMIPEXOLE HYDROCHLORIDE [Concomitant]
     Active Substance: PRAMIPEXOLE DIHYDROCHLORIDE
     Indication: PARKINSON^S DISEASE
     Route: 048
  11. PRAMIPEXOLE HYDROCHLORIDE [Concomitant]
     Active Substance: PRAMIPEXOLE DIHYDROCHLORIDE
     Route: 048
     Dates: end: 20161129
  12. LUBIPROSTONE [Concomitant]
     Active Substance: LUBIPROSTONE
     Indication: PRODUCT USED FOR UNKNOWN INDICATION
     Route: 048
  13. MECOBALAMIN [Concomitant]
     Active Substance: METHYLCOBALAMIN
     Indication: PROPHYLAXIS
     Route: 048
  14. DUODOPA [Suspect]
     Active Substance: CARBIDOPA\LEVODOPA
     Dosage: MD: 12.5 ML, CD: 2.2 ML/HR X 16 HR, ED: 2.5 ML/UNIT X 2
     Route: 050
     Dates: start: 20180927
  15. PRAMIPEXOLE HYDROCHLORIDE [Concomitant]
     Active Substance: PRAMIPEXOLE DIHYDROCHLORIDE
     Route: 048
     Dates: end: 20161129
  16. DUODOPA [Suspect]
     Active Substance: CARBIDOPA\LEVODOPA
     Dosage: MD: 12.5 ML, CD: 2.2 ML/HR X 16 HR, ED: 2.5 ML/UNIT X 2
     Route: 050
     Dates: start: 20170531, end: 20170725
  17. DUODOPA [Suspect]
     Active Substance: CARBIDOPA\LEVODOPA
     Dosage: MD: 12.5 ML, CD: 2.4 ML/HR X 16 HR, ED: 2.5 ML/UNIT X 2
     Route: 050
     Dates: start: 20180328, end: 20180424
  18. SOLIFENACIN SUCCINATE. [Concomitant]
     Active Substance: SOLIFENACIN SUCCINATE
     Indication: PRODUCT USED FOR UNKNOWN INDICATION
     Route: 048
  19. DUODOPA [Suspect]
     Active Substance: CARBIDOPA\LEVODOPA
     Indication: PARKINSON^S DISEASE
     Dosage: MD: 12.5 ML, CD: 2.5 ML/HR X 16 HR, ED: 2.5 ML/UNIT X 2
     Route: 050
     Dates: start: 20161014, end: 20161213
  20. DUODOPA [Suspect]
     Active Substance: CARBIDOPA\LEVODOPA
     Dosage: MD: 12.5 ML, CD: 2.3 ML/HR X 16 HR, ED: 2.5 ML/UNIT X 2
     Route: 050
     Dates: start: 20170823, end: 20171031
  21. DUODOPA [Suspect]
     Active Substance: CARBIDOPA\LEVODOPA
     Dosage: MD: 12.5 ML, CD: 2.6 ML/HR X 16 HR, ED: 2.5 ML/UNIT X 2
     Route: 050
     Dates: start: 20180425, end: 20180508
  22. DUODOPA [Suspect]
     Active Substance: CARBIDOPA\LEVODOPA
     Dosage: MD: 12.5 ML, CD: 2.4 ML/HR X 16 HR, ED: 2.5 ML/UNIT X 2
     Route: 050
     Dates: start: 20180509, end: 20180703
  23. DUODOPA [Suspect]
     Active Substance: CARBIDOPA\LEVODOPA
     Dosage: MD: 12.5 ML, CD: 2.3 ML/HR X 16 HR, ED: 2.5 ML/UNIT X 2
     Route: 050
     Dates: start: 20180704, end: 20180731
  24. AMANTADINE HYDROCHLORIDE. [Concomitant]
     Active Substance: AMANTADINE HYDROCHLORIDE
     Indication: PARKINSON^S DISEASE
     Route: 048
  25. MIRABEGRON [Concomitant]
     Active Substance: MIRABEGRON
     Indication: PRODUCT USED FOR UNKNOWN INDICATION
     Route: 048
  26. MAGMITT [Concomitant]
     Active Substance: MAGNESIUM OXIDE
     Indication: PRODUCT USED FOR UNKNOWN INDICATION
     Route: 048
     Dates: end: 20170704
  27. MAGNESIUM OXIDE. [Concomitant]
     Active Substance: MAGNESIUM OXIDE
     Indication: PRODUCT USED FOR UNKNOWN INDICATION
     Route: 048
     Dates: start: 20170705
  28. SODIUM BICARBONATE. [Concomitant]
     Active Substance: SODIUM BICARBONATE
     Indication: PRODUCT USED FOR UNKNOWN INDICATION
     Dosage: ANHYDROUS MONOBASIC SODIUM PHOSPHATE MIXT?AS NEEDED
     Route: 054
     Dates: start: 20171206
  29. DUODOPA [Suspect]
     Active Substance: CARBIDOPA\LEVODOPA
     Dosage: MD: 12.5 ML, CD: 2.1 ML/HR X 16 HR, ED: 2.5 ML/UNIT X 2
     Route: 050
     Dates: start: 20170322, end: 20170425
  30. DUODOPA [Suspect]
     Active Substance: CARBIDOPA\LEVODOPA
     Dosage: MD: 12.5 ML, CD: 2.3 ML/HR X 16 HR, ED: 2.5 ML/UNIT X 2
     Route: 050
     Dates: start: 20170426, end: 20170530
  31. DUODOPA [Suspect]
     Active Substance: CARBIDOPA\LEVODOPA
     Dosage: MD: 12.5 ML, CD: 2.4 ML/HR X 16 HR, ED: 2.5 ML/UNIT X 2
     Route: 050
     Dates: start: 20171101, end: 20180220
  32. SENNOSIDE [Concomitant]
     Active Substance: SENNOSIDES
     Indication: PRODUCT USED FOR UNKNOWN INDICATION
     Dosage: Q.S. FROM 24 MG TO 36 MG
     Route: 048
  33. DUODOPA [Suspect]
     Active Substance: CARBIDOPA\LEVODOPA
     Dosage: MD: 12.5 ML, CD: 2.1 ML/HR X 16 HR, ED: 2.5 ML/UNIT X 2
     Route: 050
     Dates: start: 20170726, end: 20170808
  34. ROPINIROLE HYDROCHLORIDE. [Concomitant]
     Active Substance: ROPINIROLE HYDROCHLORIDE
     Indication: PARKINSON^S DISEASE
     Route: 048
  35. SODIUM PICOSULFATE [Concomitant]
     Active Substance: SODIUM PICOSULFATE
     Indication: PRODUCT USED FOR UNKNOWN INDICATION
     Dosage: Q.S.  PRN
     Route: 048
  36. DUODOPA [Suspect]
     Active Substance: CARBIDOPA\LEVODOPA
     Dosage: MD: 12.5 ML, CD: 2.3 ML/HR X 16 HR, ED: 2.5 ML/UNIT X 2
     Route: 050
     Dates: start: 20161214, end: 20161227
  37. DUODOPA [Suspect]
     Active Substance: CARBIDOPA\LEVODOPA
     Dosage: MD: 2.5 ML, CD: 2.4 ML/HR X 16 HR, ED: 2.5 ML/UNIT X 2
     Route: 050
     Dates: start: 20180221, end: 20180327
  38. MOSAPRIDE CITRATE [Concomitant]
     Active Substance: MOSAPRIDE CITRATE
     Indication: PRODUCT USED FOR UNKNOWN INDICATION
     Route: 048
  39. DOMPERIDONE [Concomitant]
     Active Substance: DOMPERIDONE
     Indication: PRODUCT USED FOR UNKNOWN INDICATION
     Route: 048

REACTIONS (8)
  - Fatigue [Unknown]
  - Device breakage [Recovered/Resolved]
  - Catheter site nodule [Recovering/Resolving]
  - Dystonia [Recovering/Resolving]
  - Insomnia [Not Recovered/Not Resolved]
  - Colon cancer [Unknown]
  - Paronychia [Recovered/Resolved]
  - Rib fracture [Recovered/Resolved]

NARRATIVE: CASE EVENT DATE: 20161130
